FAERS Safety Report 10540744 (Version 1)
Quarter: 2014Q4

REPORT INFORMATION
  Report Type: Spontaneous
  Country: US (occurrence: None)
  Receive Date: 20141023
  Receipt Date: 20141023
  Transmission Date: 20150529
  Serious: No
  Sender: FDA-Public Use
  Company Number: None

PATIENT
  Age: 64 Year
  Sex: Female
  Weight: 56.7 kg

DRUGS (1)
  1. PROLIA [Suspect]
     Active Substance: DENOSUMAB
     Dosage: ONCE EVERY 6 MONTH

REACTIONS (4)
  - Eczema [None]
  - Rash [None]
  - Burning sensation [None]
  - Pruritus [None]

NARRATIVE: CASE EVENT DATE: 20140923
